FAERS Safety Report 8856097 (Version 1)
Quarter: 2012Q4

REPORT INFORMATION
  Report Type: Spontaneous
  Country: US (occurrence: None)
  Receive Date: 20121022
  Receipt Date: 20121022
  Transmission Date: 20130627
  Serious: Yes (Other)
  Sender: FDA-Public Use
  Company Number: None

PATIENT
  Age: 41 Year
  Sex: Female
  Weight: 95.7 kg

DRUGS (6)
  1. ISOVUE 370 [Suspect]
     Indication: PULMONARY EMBOLISM
     Dates: start: 20120827, end: 20120827
  2. DOCUSATE [Concomitant]
  3. BACTRIM [Concomitant]
  4. ATENOLOL [Concomitant]
  5. PHENYTOIN ER [Concomitant]
  6. NACI/KCL [Concomitant]

REACTIONS (3)
  - Hypoxia [None]
  - Nephropathy toxic [None]
  - Renal failure acute [None]
